FAERS Safety Report 15703260 (Version 1)
Quarter: 2018Q4

REPORT INFORMATION
  Report Type: Spontaneous
  Country: US (occurrence: US)
  Receive Date: 20181209
  Receipt Date: 20181209
  Transmission Date: 20190205
  Serious: Yes (Death)
  Sender: FDA-Public Use
  Company Number: None

PATIENT
  Age: 91 Year
  Sex: Female

DRUGS (9)
  1. TRAMADOL 50MG [Concomitant]
     Active Substance: TRAMADOL
     Dates: start: 20180814
  2. SPIRIVA [Concomitant]
     Active Substance: TIOTROPIUM BROMIDE MONOHYDRATE
     Dates: start: 20181107
  3. NIFEDIPINE 60MG ER [Concomitant]
     Dates: start: 20181117
  4. ATENOLOL 25MG TAB [Concomitant]
     Active Substance: ATENOLOL
     Dates: start: 20180813
  5. SYMBICORT [Concomitant]
     Active Substance: BUDESONIDE\FORMOTEROL FUMARATE DIHYDRATE
     Dates: start: 20181107
  6. PRAVASTATIN. [Concomitant]
     Active Substance: PRAVASTATIN
     Dates: start: 20180814
  7. DOFETILIDE. [Suspect]
     Active Substance: DOFETILIDE
     Indication: CARDIAC DISORDER
     Route: 048
     Dates: start: 20180330, end: 20181207
  8. MECLIZINE 12.5MG [Concomitant]
     Dates: start: 20180831
  9. FUROSEMIDE 40MG [Concomitant]
     Active Substance: FUROSEMIDE
     Dates: start: 20180814

REACTIONS (1)
  - Death [None]

NARRATIVE: CASE EVENT DATE: 20181207
